FAERS Safety Report 10956879 (Version 2)
Quarter: 2015Q2

REPORT INFORMATION
  Report Type: Report from Study
  Country: DE (occurrence: DE)
  Receive Date: 20150326
  Receipt Date: 20150513
  Transmission Date: 20150821
  Serious: No
  Sender: FDA-Public Use
  Company Number: DE-SA-2015SA037652

PATIENT

DRUGS (8)
  1. MICTONORM [Concomitant]
     Active Substance: PROPIVERINE HYDROCHLORIDE
     Dates: end: 201411
  2. OXYGESIC [Concomitant]
     Active Substance: OXYCODONE
     Dates: start: 201411
  3. AUBAGIO [Suspect]
     Active Substance: TERIFLUNOMIDE
     Indication: RELAPSING-REMITTING MULTIPLE SCLEROSIS
     Route: 048
     Dates: start: 20150204
  4. HYDROCHLOROTHIAZIDE. [Concomitant]
     Active Substance: HYDROCHLOROTHIAZIDE
     Dates: end: 201411
  5. MAGNESIUM HYDROGEN ASPARTATE [Concomitant]
     Dates: start: 201411
  6. SIRDALUD [Concomitant]
     Active Substance: TIZANIDINE
     Dates: start: 201411
  7. PANTOZOL [Concomitant]
     Active Substance: PANTOPRAZOLE SODIUM
     Dates: start: 201411
  8. AUBAGIO [Suspect]
     Active Substance: TERIFLUNOMIDE
     Indication: RELAPSING-REMITTING MULTIPLE SCLEROSIS
     Route: 048
     Dates: end: 20141203

REACTIONS (1)
  - Unevaluable event [Unknown]
